FAERS Safety Report 6000082-X (Version None)
Quarter: 2008Q4

REPORT INFORMATION
  Report Type: 
  Country: None (occurrence: None)
  Receive Date: 20081215
  Receipt Date: 20081205
  Transmission Date: 20090506
  Serious: Yes (Hospitalization)
  Sender: FDA-Public Use
  Company Number: B0549331A

PATIENT
  Weight: 85 kg

DRUGS (4)
  1. ARIXTRA [Suspect]
     Indication: PROPHYLAXIS
     Dosage: 2.5MG PER DAY
     Route: 058
     Dates: start: 20081010, end: 20081018
  2. ELTROXIN [Concomitant]
     Dosage: 50MCG PER DAY
     Route: 048
  3. ZUMENON [Concomitant]
     Dosage: 1TAB PER DAY
     Route: 048
  4. DAFALGAN [Concomitant]
     Dosage: 1G FOUR TIMES PER DAY
     Route: 048

REACTIONS (5)
  - DRUG INEFFECTIVE [None]
  - DYSPNOEA [None]
  - HILAR LYMPHADENOPATHY [None]
  - LYMPHADENOPATHY MEDIASTINAL [None]
  - PULMONARY EMBOLISM [None]
